FAERS Safety Report 5719504-4 (Version None)
Quarter: 2008Q2

REPORT INFORMATION
  Report Type: 
  Country: None (occurrence: None)
  Receive Date: 20080428
  Receipt Date: 20070321
  Transmission Date: 20081010
  Serious: No
  Sender: FDA-Public Use
  Company Number: A0644099A

PATIENT
  Age: 53 Year
  Sex: Male

DRUGS (6)
  1. IMITREX [Suspect]
     Indication: CLUSTER HEADACHE
     Dosage: 6MG TWICE PER DAY
     Route: 058
     Dates: start: 19920101, end: 20010101
  2. AMERGE [Suspect]
     Indication: CLUSTER HEADACHE
     Dosage: 2.5MG TWICE PER DAY
     Route: 048
     Dates: start: 20030101
  3. LYRICA [Concomitant]
  4. UNSPECIFIED MEDICATION [Concomitant]
     Indication: ESSENTIAL TREMOR
  5. PROSTATE MEDICATION [Concomitant]
  6. DILAUDID [Concomitant]

REACTIONS (4)
  - CARDIAC FLUTTER [None]
  - DRUG INEFFECTIVE [None]
  - HYPOAESTHESIA [None]
  - OFF LABEL USE [None]
